FAERS Safety Report 4892290-6 (Version None)
Quarter: 2006Q1

REPORT INFORMATION
  Report Type: 
  Country: None (occurrence: None)
  Receive Date: 20060125
  Receipt Date: 20060125
  Transmission Date: 20060701
  Serious: Yes (Death)
  Sender: FDA-Public Use
  Company Number: None

PATIENT
  Sex: Female

DRUGS (4)
  1. LEXAPRO [Suspect]
  2. WELLBUTRIN XL [Suspect]
  3. WELLBUTRIN SR [Suspect]
  4. CELEXA [Suspect]

REACTIONS (1)
  - COMPLETED SUICIDE [None]
